FAERS Safety Report 10142356 (Version 2)
Quarter: 2014Q2

REPORT INFORMATION
  Report Type: Report from Study
  Country: CA (occurrence: CA)
  Receive Date: 20140429
  Receipt Date: 20140502
  Transmission Date: 20141212
  Serious: Yes (Other)
  Sender: FDA-Public Use
  Company Number: CA-BRISTOL-MYERS SQUIBB COMPANY-20640421

PATIENT
  Age: 67 Year
  Sex: Female

DRUGS (13)
  1. ORENCIA [Suspect]
     Indication: RHEUMATOID ARTHRITIS
     Dosage: 1DF:750 UNITS NOS?STOP DATE 11-MAR-2014
     Dates: start: 20120913
  2. METFORMIN [Concomitant]
  3. JANUVIA [Concomitant]
  4. PARIET [Concomitant]
  5. PREDNISONE [Concomitant]
  6. BISOPROLOL [Concomitant]
  7. FUROSEMIDE [Concomitant]
  8. ELAVIL [Concomitant]
  9. HYDROMORPH CONTIN [Concomitant]
  10. FENTANYL [Concomitant]
  11. COVERSYL [Concomitant]
  12. CALCIUM [Concomitant]
  13. VITAMIN D [Concomitant]

REACTIONS (2)
  - Limb injury [Not Recovered/Not Resolved]
  - Wound infection [Recovering/Resolving]
